FAERS Safety Report 7227690-2 (Version None)
Quarter: 2011Q1

REPORT INFORMATION
  Report Type: 
  Country: None (occurrence: None)
  Receive Date: 20110114
  Receipt Date: 20110111
  Transmission Date: 20110831
  Serious: No
  Sender: FDA-Public Use
  Company Number: US-PFIZER INC-2011007348

PATIENT
  Sex: Male
  Weight: 132 kg

DRUGS (3)
  1. PRADAXA [Concomitant]
     Dosage: UNK
  2. TIKOSYN [Suspect]
     Indication: ATRIAL FLUTTER
     Dosage: 0.5 MG, 2X/DAY
     Route: 048
     Dates: start: 20110107
  3. LISINOPRIL [Concomitant]
     Indication: HYPERTENSION
     Dosage: UNK

REACTIONS (2)
  - BLOOD MAGNESIUM DECREASED [None]
  - BLOOD POTASSIUM DECREASED [None]
